FAERS Safety Report 19730250 (Version 1)
Quarter: 2021Q3

REPORT INFORMATION
  Report Type: Spontaneous
  Country: CN (occurrence: CN)
  Receive Date: 20210820
  Receipt Date: 20210820
  Transmission Date: 20211014
  Serious: Yes (Death)
  Sender: FDA-Public Use
  Company Number: CN-ASTRAZENECA-2021A688733

PATIENT
  Age: 65 Year
  Sex: Female
  Weight: 65 kg

DRUGS (2)
  1. IMFINZI [Suspect]
     Active Substance: DURVALUMAB
     Route: 042
     Dates: start: 20201012
  2. IMFINZI [Suspect]
     Active Substance: DURVALUMAB
     Dosage: 1500.0MG UNKNOWN
     Route: 042
     Dates: start: 20201025

REACTIONS (1)
  - Death [Fatal]
